FAERS Safety Report 17210335 (Version 4)
Quarter: 2020Q1

REPORT INFORMATION
  Report Type: Spontaneous
  Country: ES (occurrence: ES)
  Receive Date: 20191227
  Receipt Date: 20200220
  Transmission Date: 20200409
  Serious: Yes (Hospitalization)
  Sender: FDA-Public Use
  Company Number: ES-ASTRAZENECA-2019SF88560

PATIENT
  Sex: Male
  Weight: 5.8 kg

DRUGS (20)
  1. SYNAGIS [Suspect]
     Active Substance: PALIVIZUMAB
     Indication: IMMUNOSUPPRESSION
     Route: 030
  2. GONAL-F [Concomitant]
     Active Substance: FOLLITROPIN
     Indication: HYPOPITUITARISM
     Dosage: 37.5 IU 1 WEEK
     Route: 058
     Dates: start: 20190522
  3. HYDROCORTISONE. [Concomitant]
     Active Substance: HYDROCORTISONE
     Indication: HAMARTOMA
     Route: 048
     Dates: start: 20190522
  4. HYDROCORTISONE. [Concomitant]
     Active Substance: HYDROCORTISONE
     Indication: HYPOPITUITARISM
     Route: 048
     Dates: start: 20190522
  5. GONASI HP [Concomitant]
     Active Substance: GONADOTROPHIN, CHORIONIC
     Indication: HAMARTOMA
     Dosage: 1 WEEK
     Route: 058
     Dates: start: 20190522
  6. L THYROXINE [Concomitant]
     Active Substance: LEVOTHYROXINE SODIUM
     Indication: HYPOTHALAMO-PITUITARY DISORDER
     Dosage: 0.1 ML BEFORE BREAKFAST
     Route: 048
     Dates: start: 20190522
  7. GONAL-F [Concomitant]
     Active Substance: FOLLITROPIN
     Indication: HAMARTOMA
     Dosage: 37.5 IU 1 WEEK
     Route: 058
     Dates: start: 20190522
  8. SYNAGIS [Suspect]
     Active Substance: PALIVIZUMAB
     Indication: RESPIRATORY SYNCYTIAL VIRUS INFECTION
     Route: 030
  9. SYNAGIS [Suspect]
     Active Substance: PALIVIZUMAB
     Indication: RESPIRATORY SYNCYTIAL VIRUS INFECTION
     Route: 030
     Dates: start: 20191205
  10. GONASI HP [Concomitant]
     Active Substance: GONADOTROPHIN, CHORIONIC
     Indication: HYPOTHALAMO-PITUITARY DISORDER
     Dosage: 1 WEEK
     Route: 058
     Dates: start: 20190522
  11. SYNAGIS [Suspect]
     Active Substance: PALIVIZUMAB
     Indication: IMMUNOSUPPRESSION
     Route: 030
     Dates: start: 20191205
  12. GONASI HP [Concomitant]
     Active Substance: GONADOTROPHIN, CHORIONIC
     Indication: CONGENITAL ANOMALY
     Dosage: 1 WEEK
     Route: 058
     Dates: start: 20190522
  13. GONAL-F [Concomitant]
     Active Substance: FOLLITROPIN
     Indication: HYPOTHALAMO-PITUITARY DISORDER
     Dosage: 37.5 IU 1 WEEK
     Route: 058
     Dates: start: 20190522
  14. HYDROCORTISONE. [Concomitant]
     Active Substance: HYDROCORTISONE
     Indication: CONGENITAL ANOMALY
     Route: 048
     Dates: start: 20190522
  15. L THYROXINE [Concomitant]
     Active Substance: LEVOTHYROXINE SODIUM
     Indication: CONGENITAL ANOMALY
     Dosage: 0.1 ML BEFORE BREAKFAST
     Route: 048
     Dates: start: 20190522
  16. HYDROCORTISONE. [Concomitant]
     Active Substance: HYDROCORTISONE
     Indication: HYPOTHALAMO-PITUITARY DISORDER
     Route: 048
     Dates: start: 20190522
  17. GONASI HP [Concomitant]
     Active Substance: GONADOTROPHIN, CHORIONIC
     Indication: HYPOPITUITARISM
     Dosage: 1 WEEK
     Route: 058
     Dates: start: 20190522
  18. L THYROXINE [Concomitant]
     Active Substance: LEVOTHYROXINE SODIUM
     Indication: HAMARTOMA
     Dosage: 0.1 ML BEFORE BREAKFAST
     Route: 048
     Dates: start: 20190522
  19. L THYROXINE [Concomitant]
     Active Substance: LEVOTHYROXINE SODIUM
     Indication: HYPOPITUITARISM
     Dosage: 0.1 ML BEFORE BREAKFAST
     Route: 048
     Dates: start: 20190522
  20. GONAL-F [Concomitant]
     Active Substance: FOLLITROPIN
     Indication: CONGENITAL ANOMALY
     Dosage: 37.5 IU 1 WEEK
     Route: 058
     Dates: start: 20190522

REACTIONS (3)
  - Drug ineffective [Unknown]
  - Bronchiolitis [Recovered/Resolved]
  - Respiratory syncytial virus infection [Recovered/Resolved]

NARRATIVE: CASE EVENT DATE: 20191209
